FAERS Safety Report 8847566 (Version 2)
Quarter: 2013Q4

REPORT INFORMATION
  Report Type: Spontaneous
  Country: US (occurrence: US)
  Receive Date: 20121018
  Receipt Date: 20131028
  Transmission Date: 20140711
  Serious: No
  Sender: FDA-Public Use
  Company Number: US-MYLANLABS-2012S1015454

PATIENT
  Age: 83 Year
  Sex: Female

DRUGS (8)
  1. RISPERIDONE TABLETS USP [Suspect]
     Indication: INSOMNIA
     Route: 048
     Dates: start: 201111, end: 20120531
  2. RISPERIDONE TABLETS USP [Suspect]
     Indication: OFF LABEL USE
     Route: 048
     Dates: start: 201111, end: 20120531
  3. ATENOLOL [Concomitant]
     Indication: BLOOD PRESSURE INCREASED
  4. LISINOPRIL [Concomitant]
     Indication: BLOOD PRESSURE INCREASED
  5. VITAMIN C [Concomitant]
  6. VITAMIN D [Concomitant]
  7. VITAMIN B [Concomitant]
  8. LOVASTATIN [Concomitant]
     Indication: BLOOD CHOLESTEROL INCREASED

REACTIONS (3)
  - Amnesia [Recovering/Resolving]
  - Masked facies [Not Recovered/Not Resolved]
  - Gait disturbance [Not Recovered/Not Resolved]
